FAERS Safety Report 8252684-8 (Version None)
Quarter: 2012Q2

REPORT INFORMATION
  Report Type: 
  Country: None (occurrence: None)
  Receive Date: 20120402
  Receipt Date: 20110824
  Transmission Date: 20120825
  Serious: No
  Sender: FDA-Public Use
  Company Number: US-ABBOTT-11P-163-0849418-00

PATIENT
  Sex: Male
  Weight: 83.99 kg

DRUGS (6)
  1. ANDROGEL [Suspect]
     Indication: BLOOD TESTOSTERONE DECREASED
     Route: 061
  2. TAMBICOR [Concomitant]
     Indication: CARDIOVASCULAR DISORDER
  3. ZOCOR [Concomitant]
     Indication: BLOOD CHOLESTEROL
  4. ASPIRIN [Concomitant]
     Indication: CARDIOVASCULAR DISORDER
  5. TRIMIX [Concomitant]
     Indication: ERECTILE DYSFUNCTION
  6. ANDROGEL [Suspect]
     Route: 061

REACTIONS (2)
  - DRUG EFFECT DECREASED [None]
  - POLLAKIURIA [None]
